FAERS Safety Report 4845810-1 (Version None)
Quarter: 2005Q4

REPORT INFORMATION
  Report Type: 
  Country: None (occurrence: None)
  Receive Date: 20051206
  Receipt Date: 20051129
  Transmission Date: 20060501
  Serious: Yes (Other)
  Sender: FDA-Public Use
  Company Number: 2005AP06179

PATIENT

DRUGS (1)
  1. MEROPENEM [Suspect]

REACTIONS (1)
  - ANAPHYLACTIC SHOCK [None]
